FAERS Safety Report 13240452 (Version 1)
Quarter: 2017Q1

REPORT INFORMATION
  Report Type: Spontaneous
  Country: US (occurrence: US)
  Receive Date: 20170216
  Receipt Date: 20170216
  Transmission Date: 20170428
  Serious: No
  Sender: FDA-Public Use
  Company Number: US-RELYPSA-RLY2016003649

PATIENT
  Age: 56 Year
  Sex: Male

DRUGS (8)
  1. PROZAC [Concomitant]
     Active Substance: FLUOXETINE HYDROCHLORIDE
  2. ATENOLOL. [Concomitant]
     Active Substance: ATENOLOL
  3. PRILOSEC [Concomitant]
     Active Substance: OMEPRAZOLE MAGNESIUM
  4. NEUPOGEN [Concomitant]
     Active Substance: FILGRASTIM
  5. VELTASSA [Suspect]
     Active Substance: PATIROMER
     Indication: BLOOD POTASSIUM ABNORMAL
     Dosage: 8.4 G, TWICE A WEEK
     Route: 065
     Dates: start: 20160518, end: 201609
  6. TACROLIMUS. [Concomitant]
     Active Substance: TACROLIMUS
  7. VELTASSA [Suspect]
     Active Substance: PATIROMER
     Dosage: 8.4 G, THREE TIMES A WEEK
     Route: 065
     Dates: start: 201609, end: 20161014
  8. VELTASSA [Suspect]
     Active Substance: PATIROMER
     Dosage: 8.4 G, QD
     Route: 065
     Dates: start: 20161015

REACTIONS (2)
  - Inappropriate schedule of drug administration [Recovered/Resolved]
  - Blood potassium increased [Recovered/Resolved]

NARRATIVE: CASE EVENT DATE: 20160518
